FAERS Safety Report 8250236-7 (Version None)
Quarter: 2012Q2

REPORT INFORMATION
  Report Type: 
  Country: None (occurrence: None)
  Receive Date: 20120402
  Receipt Date: 20120319
  Transmission Date: 20120825
  Serious: Yes (Other)
  Sender: FDA-Public Use
  Company Number: US-RANBAXY-2012US-54148

PATIENT

DRUGS (8)
  1. LORATADINE AND PSEUDOEPHEDRINE SULFATE [Suspect]
     Indication: HYPERSENSITIVITY
     Dosage: 1 DF, BID
     Route: 065
  2. ALBUTEROL [Concomitant]
     Indication: ASTHMA
     Dosage: UNK
     Route: 065
  3. TOPIRAMATE [Concomitant]
     Indication: PRODUCT USED FOR UNKNOWN INDICATION
     Dosage: 100MG QD
     Route: 065
  4. SINGULAIR [Concomitant]
     Indication: PRODUCT USED FOR UNKNOWN INDICATION
     Dosage: 10MG,QD
     Route: 065
  5. SIMVASTATIN [Concomitant]
     Indication: BLOOD CHOLESTEROL
     Dosage: 20MG QPM
     Route: 065
  6. NEXIUM [Concomitant]
     Indication: GASTROOESOPHAGEAL REFLUX DISEASE
     Dosage: UNK
     Route: 065
  7. CLONAPINE [Concomitant]
     Indication: DEPRESSION
     Dosage: 1MG TID
     Route: 065
  8. SYNTHROID [Concomitant]
     Indication: PRODUCT USED FOR UNKNOWN INDICATION
     Dosage: UNK
     Route: 065

REACTIONS (9)
  - DRUG PRESCRIBING ERROR [None]
  - HEART RATE INCREASED [None]
  - INCORRECT DRUG ADMINISTRATION DURATION [None]
  - DRY MOUTH [None]
  - NERVOUSNESS [None]
  - DEPRESSION [None]
  - DRY EYE [None]
  - ACCIDENTAL OVERDOSE [None]
  - MEDICATION ERROR [None]
